FAERS Safety Report 25761545 (Version 1)
Quarter: 2025Q3

REPORT INFORMATION
  Report Type: Spontaneous
  Country: US (occurrence: None)
  Receive Date: 20250903
  Receipt Date: 20250903
  Transmission Date: 20251020
  Serious: No
  Sender: FDA-CTU
  Company Number: None

PATIENT
  Age: 48 Year
  Sex: Female
  Weight: 72 kg

DRUGS (2)
  1. SULFAMETHOXAZOLE AND TRIMETHOPRIM [Suspect]
     Active Substance: SULFAMETHOXAZOLE\TRIMETHOPRIM
     Indication: Urinary tract infection
     Dates: start: 20250818, end: 20250824
  2. Women^s One a day vitamin [Concomitant]

REACTIONS (11)
  - Fatigue [None]
  - Impaired work ability [None]
  - Asthenopia [None]
  - Pain in extremity [None]
  - Pain in extremity [None]
  - Pain in extremity [None]
  - Musculoskeletal pain [None]
  - Neck pain [None]
  - Back pain [None]
  - Pain in extremity [None]
  - Abdominal pain upper [None]

NARRATIVE: CASE EVENT DATE: 20250818
